FAERS Safety Report 8759501 (Version 2)
Quarter: 2013Q4

REPORT INFORMATION
  Report Type: Spontaneous
  Country: US (occurrence: US)
  Receive Date: 20120829
  Receipt Date: 20131101
  Transmission Date: 20140711
  Serious: No
  Sender: FDA-Public Use
  Company Number: US-MERCK-1207USA00083

PATIENT
  Sex: Male

DRUGS (1)
  1. VYTORIN [Suspect]
     Indication: BLOOD CHOLESTEROL
     Dosage: UNK MG, UNK
     Route: 048
     Dates: start: 201205

REACTIONS (1)
  - Joint stiffness [Not Recovered/Not Resolved]
